FAERS Safety Report 16188463 (Version 2)
Quarter: 2019Q4

REPORT INFORMATION
  Report Type: Spontaneous
  Country: AM (occurrence: AM)
  Receive Date: 20190412
  Receipt Date: 20191111
  Transmission Date: 20200122
  Serious: Yes (Death, Hospitalization, Other)
  Sender: FDA-Public Use
  Company Number: AM-ROCHE-2301133

PATIENT
  Age: 71 Year
  Sex: Female

DRUGS (1)
  1. MABTHERA [Suspect]
     Active Substance: RITUXIMAB
     Indication: NON-HODGKIN^S LYMPHOMA
     Route: 041
     Dates: start: 20190228

REACTIONS (5)
  - Cardiopulmonary failure [Fatal]
  - Infusion related reaction [Recovered/Resolved]
  - Decubitus ulcer [Unknown]
  - Anaemia [Unknown]
  - Splenomegaly [Unknown]
